FAERS Safety Report 9796496 (Version 1)
Quarter: 2014Q1

REPORT INFORMATION
  Report Type: Report from Study
  Country: ES (occurrence: ES)
  Receive Date: 20140103
  Receipt Date: 20140103
  Transmission Date: 20141002
  Serious: Yes (Other)
  Sender: FDA-Public Use
  Company Number: ES-GLAXOSMITHKLINE-B0956617A

PATIENT
  Age: 73 Year
  Sex: Male

DRUGS (6)
  1. DABRAFENIB [Suspect]
     Indication: METASTATIC MALIGNANT MELANOMA
     Dosage: 150MG TWICE PER DAY
     Route: 048
     Dates: start: 20131107
  2. TRAMETINIB [Suspect]
     Indication: METASTATIC MALIGNANT MELANOMA
     Dosage: 2MG PER DAY
     Route: 048
     Dates: start: 20131107
  3. BLOKIUM [Concomitant]
     Indication: HYPERTENSION
     Route: 048
  4. METFORMINE [Concomitant]
     Indication: DIABETES MELLITUS
     Dosage: 850MG THREE TIMES PER DAY
     Route: 048
  5. DAONIL [Concomitant]
     Indication: DIABETES MELLITUS
     Route: 048
  6. INDAPAMIDE + PERINDOPRIL [Concomitant]
     Indication: HYPERTENSION
     Route: 048

REACTIONS (2)
  - Pyrexia [Recovered/Resolved]
  - Chills [Recovered/Resolved]
